FAERS Safety Report 7318037-1 (Version None)
Quarter: 2011Q1

REPORT INFORMATION
  Report Type: 
  Country: None (occurrence: None)
  Receive Date: 20110228
  Receipt Date: 20110216
  Transmission Date: 20110831
  Serious: Yes (Death)
  Sender: FDA-Public Use
  Company Number: US-AMGEN-USASP2011009228

PATIENT
  Age: 85 Year

DRUGS (2)
  1. PROCRIT [Suspect]
     Indication: ANAEMIA OF MALIGNANT DISEASE
  2. ARANESP [Suspect]
     Indication: ANAEMIA OF MALIGNANT DISEASE

REACTIONS (1)
  - DEATH [None]
